FAERS Safety Report 10539907 (Version 1)
Quarter: 2014Q4

REPORT INFORMATION
  Report Type: Report from Study
  Country: US (occurrence: US)
  Receive Date: 20141024
  Receipt Date: 20141024
  Transmission Date: 20150529
  Serious: Yes (Hospitalization, Other)
  Sender: FDA-Public Use
  Company Number: US-BRISTOL-MYERS SQUIBB COMPANY-21496237

PATIENT
  Age: 66 Year
  Sex: Male
  Weight: 72.11 kg

DRUGS (1)
  1. ORENCIA [Suspect]
     Active Substance: ABATACEPT
     Indication: RHEUMATOID ARTHRITIS
     Route: 058

REACTIONS (4)
  - Prostatic specific antigen increased [Unknown]
  - Wrong technique in drug usage process [Unknown]
  - Dehydration [Unknown]
  - Decreased appetite [Unknown]
